FAERS Safety Report 5491733-7 (Version None)
Quarter: 2007Q4

REPORT INFORMATION
  Report Type: 
  Country: None (occurrence: None)
  Receive Date: 20071019
  Receipt Date: 20071019
  Transmission Date: 20080405
  Serious: Yes (Life-Threatening)
  Sender: FDA-Public Use
  Company Number: None

PATIENT
  Age: 60 Year
  Sex: Male
  Weight: 113.3993 kg

DRUGS (1)
  1. ZONISAMIDE [Suspect]
     Dosage: 2/100 MG AM 3/100 MG PM

REACTIONS (1)
  - CONVULSION [None]
